FAERS Safety Report 6812816-2 (Version None)
Quarter: 2010Q3

REPORT INFORMATION
  Report Type: 
  Country: None (occurrence: None)
  Receive Date: 20100701
  Receipt Date: 20100624
  Transmission Date: 20110219
  Serious: Yes (Other)
  Sender: FDA-Public Use
  Company Number: B0663223A

PATIENT
  Age: 83 Year
  Sex: Female
  Weight: 74 kg

DRUGS (7)
  1. ARIXTRA [Suspect]
     Indication: ATRIAL FIBRILLATION
     Dosage: 75MG PER DAY
     Route: 058
     Dates: start: 20100113
  2. MICARDIS [Concomitant]
  3. ACETYLSALICYLIC ACID [Concomitant]
  4. LASIX [Concomitant]
  5. DIGOXIN [Concomitant]
  6. ZOLPIDEM [Concomitant]
  7. POTASSIUM CHLORIDE [Concomitant]

REACTIONS (1)
  - SKIN NECROSIS [None]
